FAERS Safety Report 16600294 (Version 1)
Quarter: 2019Q3

REPORT INFORMATION
  Report Type: Spontaneous
  Country: CA (occurrence: CA)
  Receive Date: 20190719
  Receipt Date: 20190719
  Transmission Date: 20191004
  Serious: Yes (Death)
  Sender: FDA-Public Use
  Company Number: CA-TEVA-2019-CA-1078688

PATIENT
  Age: 70 Year
  Sex: Male

DRUGS (22)
  1. CORDARONE [Concomitant]
     Active Substance: AMIODARONE HYDROCHLORIDE
  2. APO-CAL [Concomitant]
     Active Substance: CALCIUM CARBONATE
  3. LOSEC [Concomitant]
     Active Substance: OMEPRAZOLE
  4. MOTILIUM [Concomitant]
     Active Substance: DOMPERIDONE
  5. OXAZEPAM. [Concomitant]
     Active Substance: OXAZEPAM
  6. CLONAZEPAM. [Suspect]
     Active Substance: CLONAZEPAM
     Indication: PRODUCT USED FOR UNKNOWN INDICATION
     Dosage: 1 MILLIGRAM DAILY;
     Route: 065
  7. NITRO-DUR [Concomitant]
     Active Substance: NITROGLYCERIN
  8. GRAVOL [Concomitant]
     Active Substance: DIMENHYDRINATE
  9. LIPITOR [Concomitant]
     Active Substance: ATORVASTATIN CALCIUM
  10. FENTANYL. [Suspect]
     Active Substance: FENTANYL
     Indication: PRODUCT USED FOR UNKNOWN INDICATION
     Route: 065
  11. CODEINE [Suspect]
     Active Substance: CODEINE
     Indication: PRODUCT USED FOR UNKNOWN INDICATION
     Route: 065
  12. ACETAMINOPHEN AND CODEINE [Concomitant]
     Active Substance: ACETAMINOPHEN\CODEINE PHOSPHATE
  13. ACETAMINOPHEN. [Concomitant]
     Active Substance: ACETAMINOPHEN
  14. COLACE [Concomitant]
     Active Substance: DOCUSATE SODIUM
  15. SENOKOT [Concomitant]
     Active Substance: SENNOSIDES
  16. SYNTHROID [Concomitant]
     Active Substance: LEVOTHYROXINE SODIUM
  17. ASA [Concomitant]
     Active Substance: ASPIRIN
  18. DILAUDID [Suspect]
     Active Substance: HYDROMORPHONE HYDROCHLORIDE
     Indication: PRODUCT USED FOR UNKNOWN INDICATION
     Route: 065
  19. FLUVOXAMINE [Suspect]
     Active Substance: FLUVOXAMINE
     Indication: PRODUCT USED FOR UNKNOWN INDICATION
     Route: 065
  20. FLURAZEPAM HYDROCHLORIDE. [Suspect]
     Active Substance: FLURAZEPAM HYDROCHLORIDE
     Indication: PRODUCT USED FOR UNKNOWN INDICATION
     Route: 048
  21. HEMODIALYSIS SOLUTION [Concomitant]
  22. VIOXX [Concomitant]
     Active Substance: ROFECOXIB

REACTIONS (7)
  - Ecchymosis [Fatal]
  - Respiratory failure [Fatal]
  - Fatigue [Fatal]
  - Rib fracture [Fatal]
  - Pathological fracture [Fatal]
  - Confusional state [Fatal]
  - Disorientation [Fatal]
